FAERS Safety Report 4810020-0 (Version None)
Quarter: 2005Q4

REPORT INFORMATION
  Report Type: 
  Country: None (occurrence: None)
  Receive Date: 20051026
  Receipt Date: 20051014
  Transmission Date: 20060501
  Serious: Yes (Death)
  Sender: FDA-Public Use
  Company Number: US-BRISTOL-MYERS SQUIBB COMPANY-13145586

PATIENT
  Age: 41 Year
  Sex: Female

DRUGS (2)
  1. COUMADIN [Suspect]
  2. BETASERON [Suspect]
     Indication: RELAPSING-REMITTING MULTIPLE SCLEROSIS
     Route: 058
     Dates: start: 20050101, end: 20050201

REACTIONS (1)
  - CARDIAC DISORDER [None]
